FAERS Safety Report 21571897 (Version 1)
Quarter: 2022Q4

REPORT INFORMATION
  Report Type: Spontaneous
  Country: US (occurrence: None)
  Receive Date: 20221108
  Receipt Date: 20221108
  Transmission Date: 20230112
  Serious: Yes (Death)
  Sender: FDA-Public Use
  Company Number: None

PATIENT
  Age: 15 Year
  Sex: Female
  Weight: 80.2 kg

DRUGS (5)
  1. CYTARABINE [Suspect]
     Active Substance: CYTARABINE
     Dates: end: 20211205
  2. DAUNORUBICIN [Suspect]
     Active Substance: DAUNORUBICIN
     Dates: end: 20211215
  3. METHOTREXATE [Suspect]
     Active Substance: METHOTREXATE
     Dates: end: 20211208
  4. ONCASPAR [Suspect]
     Active Substance: PEGASPARGASE
     Dates: end: 20211203
  5. VINCRISTINE SULFATE [Suspect]
     Active Substance: VINCRISTINE SULFATE
     Dates: end: 20211205

REACTIONS (8)
  - Cardiac arrest [None]
  - Sepsis [None]
  - Colitis [None]
  - Abdominal abscess [None]
  - Fistula [None]
  - Bacterial infection [None]
  - Pseudomonas infection [None]
  - Intestinal perforation [None]

NARRATIVE: CASE EVENT DATE: 20221103
